FAERS Safety Report 7812678-0 (Version None)
Quarter: 2011Q4

REPORT INFORMATION
  Report Type: 
  Country: None (occurrence: None)
  Receive Date: 20111013
  Receipt Date: 20110930
  Transmission Date: 20120403
  Serious: Yes (Other)
  Sender: FDA-Public Use
  Company Number: PA-ELI_LILLY_AND_COMPANY-PA201108002957

PATIENT
  Age: 46 Year
  Sex: Female

DRUGS (2)
  1. CYMBALTA [Suspect]
     Indication: DEPRESSION
     Dosage: 30 MG, QD
     Dates: start: 20110601
  2. MORFINE [Concomitant]

REACTIONS (5)
  - FALL [None]
  - OCULOGYRIC CRISIS [None]
  - EXTREMITY CONTRACTURE [None]
  - DYSTONIA [None]
  - JOINT DISLOCATION [None]
